FAERS Safety Report 8478094-6 (Version None)
Quarter: 2012Q2

REPORT INFORMATION
  Report Type: 
  Country: None (occurrence: None)
  Receive Date: 20120629
  Receipt Date: 20120628
  Transmission Date: 20120825
  Serious: No
  Sender: FDA-Public Use
  Company Number: US-BAYER-2012-064092

PATIENT
  Age: 35 Year
  Sex: Female

DRUGS (2)
  1. MAGNEVIST [Suspect]
     Indication: MULTIPLE SCLEROSIS
  2. MAGNEVIST [Suspect]
     Indication: NUCLEAR MAGNETIC RESONANCE IMAGING BRAIN
     Dosage: 12 ML, ONCE
     Dates: start: 20120622, end: 20120622

REACTIONS (1)
  - URTICARIA [None]
